FAERS Safety Report 10265223 (Version 1)
Quarter: 2014Q2

REPORT INFORMATION
  Report Type: Spontaneous
  Country: US (occurrence: None)
  Receive Date: 20140625
  Receipt Date: 20140625
  Transmission Date: 20141212
  Serious: Yes (Hospitalization)
  Sender: FDA-Public Use
  Company Number: None

PATIENT
  Age: 57 Year
  Sex: Female
  Weight: 81 kg

DRUGS (5)
  1. SOFOSBUVIR [Suspect]
     Indication: HEPATITIS C
     Route: 048
     Dates: start: 20140221
  2. SIMEPREVIR [Suspect]
     Route: 048
  3. IRON [Concomitant]
  4. VITAMIN B12 [Concomitant]
  5. PROTONIX [Concomitant]

REACTIONS (5)
  - Upper gastrointestinal haemorrhage [None]
  - Haematemesis [None]
  - Orthostatic hypotension [None]
  - Dehydration [None]
  - Varices oesophageal [None]
